FAERS Safety Report 19779356 (Version 1)
Quarter: 2021Q3

REPORT INFORMATION
  Report Type: Spontaneous
  Country: NL (occurrence: NL)
  Receive Date: 20210902
  Receipt Date: 20210902
  Transmission Date: 20211014
  Serious: Yes (Life-Threatening)
  Sender: FDA-Public Use
  Company Number: NL-FRESENIUS KABI-FK202109156

PATIENT
  Sex: Female
  Weight: 72 kg

DRUGS (8)
  1. OXALIPLATIN (MANUFACTURER UNKNOWN) [Suspect]
     Active Substance: OXALIPLATIN
     Indication: COLON CANCER
     Dosage: 50 PERCENT OF THE NORMAL DOSAGE CAPOX?B CURE?OXALIPLATIN 5 MG/ML ? CONCENTRATE FOR SOLUTION FOR INFU
     Route: 065
     Dates: start: 20210709, end: 20210729
  2. METOCLOPRAMIDE. [Concomitant]
     Active Substance: METOCLOPRAMIDE
     Indication: PRODUCT USED FOR UNKNOWN INDICATION
     Dosage: TABLET, 10 MG (MILLIGRAM)?METOCLOPRAMIDE 10 MG TABLET
     Route: 065
  3. METOCLOPRAMIDE. [Concomitant]
     Active Substance: METOCLOPRAMIDE
     Indication: PRODUCT USED FOR UNKNOWN INDICATION
     Dosage: SUPPOSITORY, 10 MG (MILLIGRAM) ?METOCLOPRAMIDE 10 MG SUPPOSITORY
     Route: 065
  4. MACROGOL [Concomitant]
     Active Substance: POLYETHYLENE GLYCOLS
     Indication: PRODUCT USED FOR UNKNOWN INDICATION
     Dosage: POWDER FOR DRINK?MACROGOL/SALTS POWDER FOR DRINK (MOVIC/MOLAX/LAXT/GEN) / MOVICOLON POWDER FOR DRINK
     Route: 065
  5. ONDANSETRON [Concomitant]
     Active Substance: ONDANSETRON
     Indication: PRODUCT USED FOR UNKNOWN INDICATION
     Dosage: ORODISPERSIBLE TABLET, 8 MG (MILLIGRAM)?ONDANSETRON 8 MG ? ORODISPERSIBLE TABLET
     Route: 065
  6. DEXAMETHASONE. [Concomitant]
     Active Substance: DEXAMETHASONE
     Indication: PRODUCT USED FOR UNKNOWN INDICATION
     Dosage: 8 MG TABLET?DEXAMETHASONE 4 MG
     Route: 065
  7. PANTOPRAZOLE [Concomitant]
     Active Substance: PANTOPRAZOLE
     Indication: PRODUCT USED FOR UNKNOWN INDICATION
     Dosage: GASTRO?RESISTANT TABLET, 40 MG (MILLIGRAM) ?PANTOPRAZOLE 40 MG ? GASTRO?RESISTANT TABLET
     Route: 065
  8. CAPECITABINE. [Concomitant]
     Active Substance: CAPECITABINE
     Indication: PRODUCT USED FOR UNKNOWN INDICATION
     Dosage: 800MG IN FILMCOATED TABELTS ?CAPECITABINE 300MG TABLET ? FILM?COATED TABLET
     Route: 065

REACTIONS (2)
  - Laryngospasm [Recovered/Resolved]
  - Anaphylactic reaction [Recovered/Resolved]
